FAERS Safety Report 5123576-8 (Version None)
Quarter: 2006Q4

REPORT INFORMATION
  Report Type: 
  Country: None (occurrence: None)
  Receive Date: 20061010
  Receipt Date: 20060929
  Transmission Date: 20070319
  Serious: Yes (Hospitalization, Other)
  Sender: FDA-Public Use
  Company Number: JP-JNJFOC-20060701242

PATIENT
  Sex: Female

DRUGS (9)
  1. MICONAZOLE [Suspect]
     Indication: ORAL CANDIDIASIS
     Route: 048
     Dates: start: 20050427
  2. WARFARIN SODIUM [Interacting]
     Route: 048
  3. WARFARIN SODIUM [Interacting]
     Indication: DRUG USE FOR UNKNOWN INDICATION
     Route: 048
  4. DILTIAZEM HYDROCHLORIDE [Concomitant]
     Route: 065
     Dates: start: 20050225
  5. LOSARTAN POTASSIUM [Concomitant]
     Route: 065
     Dates: start: 20050225
  6. ASPIRIN [Concomitant]
     Route: 065
     Dates: start: 20050225
  7. SODIUM AZULENE SULFONATE_L-GLUTAMINE [Concomitant]
     Route: 065
     Dates: start: 20050225
  8. LOXOPROFEN SODIUM [Concomitant]
     Route: 065
     Dates: start: 20050225
  9. SENNOSIDE [Concomitant]
     Route: 065
     Dates: start: 20050225

REACTIONS (5)
  - ABDOMINAL PAIN UPPER [None]
  - DRUG INTERACTION [None]
  - HAEMORRHAGE SUBCUTANEOUS [None]
  - PETECHIAE [None]
  - TONGUE HAEMORRHAGE [None]
